FAERS Safety Report 4295195-7 (Version None)
Quarter: 2004Q1

REPORT INFORMATION
  Report Type: 
  Country: None (occurrence: None)
  Receive Date: 20040212
  Receipt Date: 20040203
  Transmission Date: 20041129
  Serious: Yes (Death, Hospitalization)
  Sender: FDA-Public Use
  Company Number: 2004197625US

PATIENT
  Age: 33 Year
  Sex: Female

DRUGS (2)
  1. DELTASONE [Suspect]
     Dosage: 60 MG, QD,
  2. AZATHIOPRINE [Concomitant]

REACTIONS (2)
  - PNEUMOCYSTIS CARINII INFECTION [None]
  - PNEUMONIA STREPTOCOCCAL [None]
